FAERS Safety Report 6856898-0 (Version None)
Quarter: 2010Q3

REPORT INFORMATION
  Report Type: 
  Country: None (occurrence: None)
  Receive Date: 20100719
  Receipt Date: 20100713
  Transmission Date: 20110219
  Serious: Yes (Hospitalization)
  Sender: FDA-Public Use
  Company Number: US-ELI_LILLY_AND_COMPANY-US201006005755

PATIENT
  Sex: Male

DRUGS (10)
  1. HUMALOG MIX 75/25 [Suspect]
     Indication: DIABETES MELLITUS
     Dosage: 60 U, 3/D
  2. ASPIRIN [Concomitant]
  3. AMLODIPINE [Concomitant]
  4. LANTUS [Concomitant]
  5. CRESTOR [Concomitant]
  6. LISINOPRIL [Concomitant]
  7. METOPROLOL [Concomitant]
  8. SEROQUEL [Concomitant]
  9. TESTIM [Concomitant]
  10. VIAGRA [Concomitant]

REACTIONS (1)
  - MYOCARDIAL INFARCTION [None]
